FAERS Safety Report 8422376-0 (Version None)
Quarter: 2012Q2

REPORT INFORMATION
  Report Type: 
  Country: None (occurrence: None)
  Receive Date: 20120608
  Receipt Date: 20120530
  Transmission Date: 20120825
  Serious: Yes (Other)
  Sender: FDA-Public Use
  Company Number: US-ASTRAZENECA-2012SE28153

PATIENT
  Age: 69 Year
  Sex: Male
  Weight: 220 kg

DRUGS (8)
  1. PIROXICAM [Concomitant]
     Indication: OSTEOARTHRITIS
     Route: 048
     Dates: start: 20120216, end: 20120514
  2. RANITIDINE [Concomitant]
     Indication: GASTROOESOPHAGEAL REFLUX DISEASE
     Route: 048
     Dates: start: 20110404
  3. CHOLESTEROL MEDICATION [Concomitant]
  4. ATACAND HCT [Suspect]
     Indication: BLOOD PRESSURE
     Dosage: 32/12.5 MG DAILY ONE TABLET
     Route: 048
  5. ATACAND HCT [Suspect]
     Indication: HYPERTENSION
     Dosage: 32/12.5 MG DAILY ONE TABLET
     Route: 048
  6. ARTHRITIS MEDICATION [Concomitant]
  7. FENOFIBRATE [Concomitant]
     Indication: LIPIDS INCREASED
     Route: 048
     Dates: start: 20101206
  8. TESTOSTERONE [Concomitant]
     Indication: HYPOGONADISM
     Route: 030

REACTIONS (2)
  - BLOOD PRESSURE INCREASED [None]
  - COUNTERFEIT DRUG ADMINISTERED [None]
